FAERS Safety Report 8303949-2 (Version None)
Quarter: 2012Q2

REPORT INFORMATION
  Report Type: 
  Country: None (occurrence: None)
  Receive Date: 20120423
  Receipt Date: 20120419
  Transmission Date: 20120825
  Serious: Yes (Life-Threatening)
  Sender: FDA-Public Use
  Company Number: PHHY2012DE033672

PATIENT
  Age: 77 Year
  Sex: Male
  Weight: 83 kg

DRUGS (5)
  1. DICLOFENAC SODIUM [Suspect]
     Dosage: 150 MG, DAILY
     Route: 048
     Dates: start: 20111012, end: 20111102
  2. METAMIZOLE [Concomitant]
     Dosage: AS NEEDED
     Route: 048
     Dates: start: 20111021, end: 20111102
  3. TAMSULOSIN HCL [Concomitant]
     Indication: PROSTATIC OPERATION
     Dosage: 0.4 MG, EVERY 2 DAYS
     Route: 048
     Dates: start: 19980101, end: 20111102
  4. PANTOPRAZOLE [Concomitant]
     Dosage: 20 MG, QD
     Route: 048
     Dates: start: 20111012, end: 20111102
  5. XARELTO [Suspect]
     Dosage: 10 MG, DAILY
     Route: 048
     Dates: start: 20111012, end: 20111102

REACTIONS (1)
  - CEREBRAL HAEMORRHAGE [None]
